FAERS Safety Report 4287157-0 (Version None)
Quarter: 2004Q1

REPORT INFORMATION
  Report Type: 
  Country: None (occurrence: None)
  Receive Date: 20040121
  Receipt Date: 20030804
  Transmission Date: 20041129
  Serious: Yes (Hospitalization)
  Sender: FDA-Public Use
  Company Number: A03200301762

PATIENT
  Age: 88 Year
  Sex: Female

DRUGS (6)
  1. PLAVIX [Suspect]
     Indication: CARDIAC DISORDER
     Dosage: 75 MG QD - ORAL
     Route: 048
  2. ACETYLSALICYLIC ACID SRT [Concomitant]
  3. GLYCERYL TRINITRATE [Concomitant]
  4. METOPROLOL SUCCINATE [Concomitant]
  5. LORAZEPAM [Concomitant]
  6. .. [Concomitant]

REACTIONS (1)
  - EPISTAXIS [None]
